FAERS Safety Report 12929014 (Version 2)
Quarter: 2016Q4

REPORT INFORMATION
  Report Type: Spontaneous
  Country: JP (occurrence: JP)
  Receive Date: 20161110
  Receipt Date: 20161208
  Transmission Date: 20170207
  Serious: Yes (Other)
  Sender: FDA-Public Use
  Company Number: JP-ROCHE-1852536

PATIENT
  Age: 73 Year
  Sex: Male

DRUGS (10)
  1. MAQAID [Concomitant]
     Active Substance: TRIAMCINOLONE ACETONIDE
     Dosage: UNK, RIGHT EYE
     Route: 031
  2. LUCENTIS [Suspect]
     Active Substance: RANIBIZUMAB
     Indication: DIABETIC RETINAL OEDEMA
     Dosage: 0.5 MG, UNK
     Route: 031
  3. MAQAID [Concomitant]
     Active Substance: TRIAMCINOLONE ACETONIDE
     Dosage: UNK, LEFT EYE
     Route: 031
  4. MAQAID [Concomitant]
     Active Substance: TRIAMCINOLONE ACETONIDE
     Dosage: UNK, RIGHT EYE
     Route: 031
  5. EYLEA [Concomitant]
     Active Substance: AFLIBERCEPT
     Indication: PRODUCT USED FOR UNKNOWN INDICATION
     Dosage: UNK, BOTH EYES
     Route: 065
  6. MAQAID [Concomitant]
     Active Substance: TRIAMCINOLONE ACETONIDE
     Dosage: UNK, RIGHT EYE
     Route: 031
  7. MAQAID [Concomitant]
     Active Substance: TRIAMCINOLONE ACETONIDE
     Indication: PRODUCT USED FOR UNKNOWN INDICATION
     Dosage: UNK, RIGHT EYE
     Route: 031
  8. MAQAID [Concomitant]
     Active Substance: TRIAMCINOLONE ACETONIDE
     Dosage: UNK, LEFT EYE
     Route: 031
  9. MAQAID [Concomitant]
     Active Substance: TRIAMCINOLONE ACETONIDE
     Dosage: UNK, LEFT EYE
     Route: 031
  10. EYLEA [Concomitant]
     Active Substance: AFLIBERCEPT
     Dosage: 2 MG, UNK (PEER ADMINISTARTION)
     Route: 031

REACTIONS (3)
  - Visual acuity reduced [Unknown]
  - Diabetic retinal oedema [Unknown]
  - Intraocular pressure increased [Unknown]
